FAERS Safety Report 20693867 (Version 2)
Quarter: 2022Q2

REPORT INFORMATION
  Report Type: Spontaneous
  Country: US (occurrence: US)
  Receive Date: 20220411
  Receipt Date: 20220616
  Transmission Date: 20220721
  Serious: No
  Sender: FDA-Public Use
  Company Number: US-SANOFI-01052344

PATIENT
  Age: 74 Year
  Sex: Female

DRUGS (1)
  1. LANTUS SOLOSTAR [Suspect]
     Active Substance: INSULIN GLARGINE
     Indication: Type 2 diabetes mellitus
     Dosage: 34 U, QD DRUG STRUCTURE DOSAGE : 34 UNITS DRUG INTERVAL DOSAGE : EACH DAY DRUG TREATMENT DURATION:

REACTIONS (2)
  - Injection site discomfort [Unknown]
  - Injection site pain [Unknown]
